FAERS Safety Report 16970361 (Version 3)
Quarter: 2020Q1

REPORT INFORMATION
  Report Type: Spontaneous
  Country: US (occurrence: US)
  Receive Date: 20191029
  Receipt Date: 20200206
  Transmission Date: 20200409
  Serious: Yes (Disabling, Other)
  Sender: FDA-Public Use
  Company Number: US-ALLERGAN-1942369US

PATIENT
  Sex: Female
  Weight: 124.72 kg

DRUGS (5)
  1. OZURDEX [Suspect]
     Active Substance: DEXAMETHASONE
     Indication: DIABETIC RETINAL OEDEMA
     Dosage: 0.7 MG, SINGLE
     Route: 031
     Dates: start: 20190212, end: 20190212
  2. LOSARTAN. [Concomitant]
     Active Substance: LOSARTAN
  3. OZURDEX [Suspect]
     Active Substance: DEXAMETHASONE
     Indication: DIABETIC RETINOPATHY
     Dosage: 0.7 MG, SINGLE
     Route: 031
     Dates: start: 20190212, end: 20190212
  4. OZURDEX [Suspect]
     Active Substance: DEXAMETHASONE
     Dosage: 0.7 MG, SINGLE
     Route: 031
     Dates: start: 20181009, end: 20181009
  5. LEVOTHYROXINE. [Concomitant]
     Active Substance: LEVOTHYROXINE
     Indication: THYROID DISORDER

REACTIONS (14)
  - Suspected product contamination [Unknown]
  - Visual impairment [Recovering/Resolving]
  - Cataract [Not Recovered/Not Resolved]
  - Recalled product administered [Unknown]
  - Eye infection [Recovered/Resolved]
  - Eye pain [Recovered/Resolved]
  - Eye inflammation [Recovered/Resolved]
  - Ocular hyperaemia [Recovered/Resolved]
  - Visual acuity reduced [Recovering/Resolving]
  - Blindness unilateral [Not Recovered/Not Resolved]
  - Lacrimation increased [Recovered/Resolved]
  - Off label use [Unknown]
  - Injection site pain [Recovered/Resolved]
  - Eye haemorrhage [Recovered/Resolved]

NARRATIVE: CASE EVENT DATE: 20181009
